FAERS Safety Report 8557530 (Version 4)
Quarter: 2012Q4

REPORT INFORMATION
  Report Type: 
  Country: JP (occurrence: JP)
  Receive Date: 20120511
  Receipt Date: 20121127
  Transmission Date: 20130627
  Serious: Yes (Death, Other)
  Sender: FDA-Public Use
  Company Number: JP-ASTRAZENECA-2012SE28570

PATIENT
  Age: 47 Year
  Sex: Male
  Weight: 103 kg

DRUGS (2)
  1. DIPRIVAN [Suspect]
     Indication: SEDATION
     Dosage: DOSE UNKNOWN
     Route: 042
     Dates: start: 20120501
  2. ADRENAL HORMON PREPARATIONS [Concomitant]

REACTIONS (3)
  - Propofol infusion syndrome [Fatal]
  - Pyrexia [Fatal]
  - Myoglobin urine present [Fatal]
